FAERS Safety Report 8171768-6 (Version None)
Quarter: 2012Q1

REPORT INFORMATION
  Report Type: 
  Country: None (occurrence: None)
  Receive Date: 20120228
  Receipt Date: 20120222
  Transmission Date: 20120608
  Serious: Yes (Death)
  Sender: FDA-Public Use
  Company Number: US-GLAXOSMITHKLINE-A0961482A

PATIENT
  Age: 62 Year
  Sex: Female

DRUGS (1)
  1. MEPRON [Suspect]
     Route: 065
     Dates: start: 20110606

REACTIONS (1)
  - DEATH [None]
